FAERS Safety Report 13374335 (Version 1)
Quarter: 2017Q1

REPORT INFORMATION
  Report Type: Spontaneous
  Country: US (occurrence: US)
  Receive Date: 20170327
  Receipt Date: 20170327
  Transmission Date: 20170429
  Serious: Yes (Hospitalization)
  Sender: FDA-Public Use
  Company Number: US-BAYER-2017-050564

PATIENT
  Age: 61 Year
  Sex: Female

DRUGS (3)
  1. BETASERON [Suspect]
     Active Substance: INTERFERON BETA-1B
     Indication: MULTIPLE SCLEROSIS
     Dosage: 0.25 MG, QOD
     Route: 058
     Dates: start: 20170202
  2. MECLIZINE [Concomitant]
     Active Substance: MECLIZINE HYDROCHLORIDE
  3. CELEBREX [Concomitant]
     Active Substance: CELECOXIB

REACTIONS (1)
  - Road traffic accident [Recovered/Resolved]
